FAERS Safety Report 16622751 (Version 1)
Quarter: 2019Q3

REPORT INFORMATION
  Report Type: Spontaneous
  Country: US (occurrence: US)
  Receive Date: 20190723
  Receipt Date: 20190723
  Transmission Date: 20191004
  Serious: Yes (Other)
  Sender: FDA-Public Use
  Company Number: US-OTSUKA-2019_016832

PATIENT
  Sex: Female

DRUGS (1)
  1. REXULTI [Suspect]
     Active Substance: BREXPIPRAZOLE
     Indication: PRODUCT USED FOR UNKNOWN INDICATION
     Dosage: 1 MG, UNK
     Route: 065

REACTIONS (5)
  - Suicidal ideation [Recovered/Resolved]
  - Bipolar disorder [Not Recovered/Not Resolved]
  - Therapy cessation [Unknown]
  - Inability to afford medication [Unknown]
  - Abnormal behaviour [Recovered/Resolved]
